FAERS Safety Report 6416810-5 (Version None)
Quarter: 2009Q4

REPORT INFORMATION
  Report Type: 
  Country: None (occurrence: None)
  Receive Date: 20091027
  Receipt Date: 20091016
  Transmission Date: 20100525
  Serious: Yes (Other)
  Sender: FDA-Public Use
  Company Number: US-MERCK-0910USA02097

PATIENT
  Age: 62 Year
  Sex: Male

DRUGS (12)
  1. DECADRON [Suspect]
     Indication: MULTIPLE MYELOMA
     Route: 048
  2. THALOMID [Suspect]
     Indication: MULTIPLE MYELOMA
     Route: 048
     Dates: start: 20090202
  3. LASIX [Concomitant]
     Route: 065
  4. HYDRALAZINE [Concomitant]
     Route: 065
  5. TOPROL-XL [Concomitant]
     Route: 065
  6. LIPITOR [Concomitant]
     Route: 065
  7. FLOMAX [Concomitant]
     Route: 065
  8. POTASSIUM (UNSPECIFIED) [Concomitant]
     Route: 065
  9. CLONIDINE [Concomitant]
     Route: 065
  10. PLAVIX [Concomitant]
     Route: 065
  11. BIDIL [Concomitant]
     Route: 065
  12. THEOPHYLLINE [Concomitant]
     Route: 065

REACTIONS (2)
  - OEDEMA PERIPHERAL [None]
  - RENAL FAILURE [None]
